FAERS Safety Report 5675582-2 (Version None)
Quarter: 2008Q1

REPORT INFORMATION
  Report Type: 
  Country: None (occurrence: None)
  Receive Date: 20080321
  Receipt Date: 20080312
  Transmission Date: 20080703
  Serious: Yes (Other)
  Sender: FDA-Public Use
  Company Number: DE-JNJFOC-20080303222

PATIENT
  Sex: Male

DRUGS (1)
  1. IONSYS [Suspect]
     Indication: DRUG USE FOR UNKNOWN INDICATION
     Route: 044

REACTIONS (1)
  - DEVICE FAILURE [None]
